FAERS Safety Report 12387986 (Version 1)
Quarter: 2016Q2

REPORT INFORMATION
  Report Type: Spontaneous
  Country: US (occurrence: None)
  Receive Date: 20160519
  Receipt Date: 20160519
  Transmission Date: 20160815
  Serious: Yes (Death, Hospitalization, Other)
  Sender: FDA-Public Use
  Company Number: None

PATIENT
  Age: 83 Year
  Sex: Female
  Weight: 61.24 kg

DRUGS (1)
  1. OXYCODONE [Suspect]
     Active Substance: OXYCODONE

REACTIONS (5)
  - Hepatic failure [None]
  - Pulmonary thrombosis [None]
  - Aggression [None]
  - Hepatic cyst [None]
  - Back pain [None]

NARRATIVE: CASE EVENT DATE: 20160304
